FAERS Safety Report 6311805-4 (Version None)
Quarter: 2009Q3

REPORT INFORMATION
  Report Type: 
  Country: None (occurrence: None)
  Receive Date: 20090813
  Receipt Date: 20090813
  Transmission Date: 20100115
  Serious: Yes (Other)
  Sender: FDA-Public Use
  Company Number: None

PATIENT
  Age: 87 Year
  Sex: Male
  Weight: 81.6475 kg

DRUGS (2)
  1. FLOMAX [Suspect]
     Indication: PROSTATIC DISORDER
     Dosage: 4 MG ONCE A DAY
     Dates: start: 20090601
  2. FLOMAX [Suspect]
     Indication: PROSTATIC DISORDER
     Dosage: 4 MG ONCE A DAY
     Dates: start: 20090610

REACTIONS (2)
  - PRURITUS [None]
  - RASH [None]
